FAERS Safety Report 5545764-9 (Version None)
Quarter: 2007Q4

REPORT INFORMATION
  Report Type: 
  Country: None (occurrence: None)
  Receive Date: 20071211
  Receipt Date: 20071126
  Transmission Date: 20080405
  Serious: Yes (Other)
  Sender: FDA-Public Use
  Company Number: US-ELI_LILLY_AND_COMPANY-US200711000982

PATIENT
  Sex: Female
  Weight: 90.702 kg

DRUGS (1)
  1. EVISTA [Suspect]
     Indication: OSTEOPENIA
     Dosage: 60 MG, UNK
     Dates: start: 19980305, end: 20011212

REACTIONS (9)
  - BACK PAIN [None]
  - BREAST CANCER [None]
  - COUGH [None]
  - DYSPHONIA [None]
  - HOT FLUSH [None]
  - MAMMOGRAM ABNORMAL [None]
  - PAIN [None]
  - STRESS [None]
  - WEIGHT INCREASED [None]
